FAERS Safety Report 5152532-9 (Version None)
Quarter: 2006Q4

REPORT INFORMATION
  Report Type: 
  Country: None (occurrence: None)
  Receive Date: 20061116
  Receipt Date: 20061013
  Transmission Date: 20070319
  Serious: Yes (Hospitalization)
  Sender: FDA-Public Use
  Company Number: US-ELI_LILLY_AND_COMPANY-US200610002403

PATIENT
  Age: 57 Year
  Sex: Female

DRUGS (9)
  1. HUMULIN R [Suspect]
     Indication: DIABETES MELLITUS
     Dosage: AS NEEDED, PER SLIDING SCALE
     Dates: start: 20040101
  2. HYDROXYZINE [Concomitant]
     Dosage: 50 MG, 3/D
  3. ZOLOFT [Concomitant]
     Dosage: 100 MG, DAILY (1/D)
  4. ASPIRIN [Concomitant]
     Dosage: UNK UNK, DAILY (1/D)
  5. COZAAR [Concomitant]
     Dosage: 100 MG, UNK
  6. ALPRAZOLAM [Concomitant]
  7. GLYBURIDE [Concomitant]
  8. METFORMIN [Concomitant]
  9. ANTIHYPERTENSIVES [Concomitant]
     Indication: BLOOD PRESSURE

REACTIONS (12)
  - ANXIETY [None]
  - APHASIA [None]
  - BLOOD GLUCOSE INCREASED [None]
  - FEELING ABNORMAL [None]
  - HEMIPARESIS [None]
  - INSOMNIA [None]
  - IRREGULAR SLEEP PHASE [None]
  - ISCHAEMIC STROKE [None]
  - PHARMACEUTICAL PRODUCT COMPLAINT [None]
  - STARVATION [None]
  - TREMOR [None]
  - URTICARIA [None]
